FAERS Safety Report 5223842-1 (Version None)
Quarter: 2007Q1

REPORT INFORMATION
  Report Type: 
  Country: None (occurrence: None)
  Receive Date: 20070130
  Receipt Date: 20070122
  Transmission Date: 20070707
  Serious: Yes (Death, Other)
  Sender: FDA-Public Use
  Company Number: JP-BRISTOL-MYERS SQUIBB COMPANY-13613807

PATIENT
  Age: 60 Year
  Sex: Female

DRUGS (6)
  1. PACLITAXEL [Suspect]
     Indication: OVARIAN CANCER
  2. PACLITAXEL [Suspect]
     Indication: ENDOMETRIAL CANCER
  3. CARBOPLATIN [Suspect]
     Indication: OVARIAN CANCER
  4. CARBOPLATIN [Suspect]
     Indication: ENDOMETRIAL CANCER
  5. HEPARIN [Concomitant]
  6. WARFARIN SODIUM [Concomitant]

REACTIONS (3)
  - ARTERIAL THROMBOSIS [None]
  - METASTASES TO LIVER [None]
  - THROMBOCYTOPENIA [None]
